FAERS Safety Report 19777018 (Version 2)
Quarter: 2021Q3

REPORT INFORMATION
  Report Type: Other
  Country: RO (occurrence: RO)
  Receive Date: 20210902
  Receipt Date: 20210907
  Transmission Date: 20211014
  Serious: Yes (Other)
  Sender: FDA-Public Use
  Company Number: RO-ROCHE-2877256

PATIENT
  Sex: Female

DRUGS (2)
  1. MABTHERA [Suspect]
     Active Substance: RITUXIMAB
     Indication: NEOPLASM MALIGNANT
     Route: 058
  2. MABTHERA [Suspect]
     Active Substance: RITUXIMAB
     Indication: NEOPLASM MALIGNANT
     Route: 042

REACTIONS (5)
  - Deafness [Unknown]
  - Endotracheal intubation [Unknown]
  - Weight decreased [Unknown]
  - Condition aggravated [Unknown]
  - Alopecia [Unknown]
